FAERS Safety Report 15292183 (Version 1)
Quarter: 2018Q3

REPORT INFORMATION
  Report Type: Spontaneous
  Country: US (occurrence: US)
  Receive Date: 20180806
  Receipt Date: 20180806
  Transmission Date: 20181010
  Serious: Yes (Other)
  Sender: FDA-Public Use
  Company Number: None

PATIENT
  Age: 33 Year
  Sex: Female

DRUGS (2)
  1. TRAZODONE [Suspect]
     Active Substance: TRAZODONE HYDROCHLORIDE
     Indication: MIDDLE INSOMNIA
     Dosage: ?          QUANTITY:2 TABLET(S);?
     Route: 048
     Dates: end: 20180805
  2. TRAZODONE [Suspect]
     Active Substance: TRAZODONE HYDROCHLORIDE
     Indication: INITIAL INSOMNIA
     Dosage: ?          QUANTITY:2 TABLET(S);?
     Route: 048
     Dates: end: 20180805

REACTIONS (9)
  - Dyspnoea [None]
  - Night sweats [None]
  - Insomnia [None]
  - Abdominal pain [None]
  - Vertigo [None]
  - Pyrexia [None]
  - Confusional state [None]
  - Diarrhoea [None]
  - Memory impairment [None]

NARRATIVE: CASE EVENT DATE: 20180801
